FAERS Safety Report 23476692 (Version 1)
Quarter: 2024Q1

REPORT INFORMATION
  Report Type: Report from Study
  Country: US (occurrence: US)
  Receive Date: 20240204
  Receipt Date: 20240204
  Transmission Date: 20240409
  Serious: No
  Sender: FDA-Public Use
  Company Number: US-EXELIXIS-CABO-23063935

PATIENT
  Sex: Female

DRUGS (13)
  1. CABOMETYX [Suspect]
     Active Substance: CABOZANTINIB S-MALATE
     Indication: Adrenal gland cancer
     Dosage: 60 MG, QD
     Dates: start: 20230429
  2. KEYTRUDA [Suspect]
     Active Substance: PEMBROLIZUMAB
     Indication: Adrenal gland cancer
     Dosage: UNK, Q6WEEK
     Dates: start: 20230429
  3. BUPROPION [Concomitant]
     Active Substance: BUPROPION
  4. FLEXERIL [Concomitant]
     Active Substance: CYCLOBENZAPRINE HYDROCHLORIDE
  5. HYDROCORTISONE [Concomitant]
     Active Substance: HYDROCORTISONE
  6. LEVOTHYROXINE [Concomitant]
     Active Substance: LEVOTHYROXINE\LEVOTHYROXINE SODIUM
  7. OXYCODONE [Concomitant]
     Active Substance: OXYCODONE\OXYCODONE HYDROCHLORIDE
  8. PEPCID [Concomitant]
     Active Substance: FAMOTIDINE
  9. XANAX [Concomitant]
     Active Substance: ALPRAZOLAM
  10. XARELTO [Concomitant]
     Active Substance: RIVAROXABAN
  11. LAMICTAL [Concomitant]
     Active Substance: LAMOTRIGINE
  12. TYLENOL [Concomitant]
     Active Substance: ACETAMINOPHEN
  13. FLUVOXAMINE [Concomitant]
     Active Substance: FLUVOXAMINE

REACTIONS (8)
  - Erythema [Recovered/Resolved]
  - Skin irritation [Recovered/Resolved]
  - Fatigue [Not Recovered/Not Resolved]
  - Constipation [Recovering/Resolving]
  - Blood pressure increased [Recovering/Resolving]
  - Drug ineffective [Unknown]
  - Neoplasm progression [Unknown]
  - Off label use [Unknown]
